FAERS Safety Report 5072994-5 (Version None)
Quarter: 2006Q3

REPORT INFORMATION
  Report Type: 
  Country: None (occurrence: None)
  Receive Date: 20060802
  Receipt Date: 20060720
  Transmission Date: 20061208
  Serious: Yes (Other)
  Sender: FDA-Public Use
  Company Number: 2006089305

PATIENT
  Age: 36 Year
  Sex: Male

DRUGS (1)
  1. ZYVOX [Suspect]
     Indication: OSTEITIS
     Dates: start: 20060630, end: 20060701

REACTIONS (2)
  - ANAEMIA [None]
  - LEG AMPUTATION [None]
